FAERS Safety Report 13878942 (Version 2)
Quarter: 2017Q4

REPORT INFORMATION
  Report Type: Spontaneous
  Country: FR (occurrence: FR)
  Receive Date: 20170817
  Receipt Date: 20171003
  Transmission Date: 20180320
  Serious: Yes (Hospitalization)
  Sender: FDA-Public Use
  Company Number: PHHY2017FR117574

PATIENT
  Age: 19 Year
  Sex: Male
  Weight: 58 kg

DRUGS (5)
  1. ZOPHREN [Suspect]
     Active Substance: ONDANSETRON
     Indication: PRODUCT USED FOR UNKNOWN INDICATION
     Dosage: 8 MG, UNK
     Route: 042
     Dates: start: 20170712, end: 20170712
  2. OXALIPLATINE ACCORD [Suspect]
     Active Substance: OXALIPLATIN
     Dosage: 2560 UNK, UNK
     Route: 042
  3. OXALIPLATINE ACCORD [Suspect]
     Active Substance: OXALIPLATIN
     Dosage: 80 UNK, UNK
     Route: 042
  4. METHYLPREDNISOLONE. [Suspect]
     Active Substance: METHYLPREDNISOLONE
     Indication: PRODUCT USED FOR UNKNOWN INDICATION
     Dosage: 40 MG, UNK
     Route: 042
     Dates: start: 20170712, end: 20170712
  5. OXALIPLATINE ACCORD [Suspect]
     Active Substance: OXALIPLATIN
     Indication: HEPATOCELLULAR CARCINOMA
     Dosage: 127 MG, UNK
     Route: 042
     Dates: start: 20170712, end: 20170712

REACTIONS (2)
  - Erythema [Recovered/Resolved]
  - Nausea [Recovered/Resolved]

NARRATIVE: CASE EVENT DATE: 20170712
